FAERS Safety Report 9698768 (Version 2)
Quarter: 2013Q4

REPORT INFORMATION
  Report Type: Spontaneous
  Country: PT (occurrence: PT)
  Receive Date: 20131120
  Receipt Date: 20131127
  Transmission Date: 20140711
  Serious: Yes (Life-Threatening, Hospitalization, Other)
  Sender: FDA-Public Use
  Company Number: PT-VERTEX PHARMACEUTICALS INC-2013-011192

PATIENT
  Age: 67 Year
  Sex: Male

DRUGS (3)
  1. INCIVO [Suspect]
     Indication: HEPATITIS C
     Dosage: 2250 MG, QD
     Route: 048
     Dates: start: 20131006, end: 20131113
  2. RIBAVIRIN [Concomitant]
     Dosage: DOSAGE FORM: UNSPECIFIED
     Route: 048
     Dates: start: 20131006, end: 20131113
  3. PEGYLATED INTERFERON A [Concomitant]
     Dosage: DOSAGE FORM: UNSPECIFIED
     Route: 058
     Dates: start: 20131006, end: 20131113

REACTIONS (3)
  - Varicose vein ruptured [Recovered/Resolved]
  - Anaemia [Not Recovered/Not Resolved]
  - Vomiting [Unknown]
